FAERS Safety Report 7364834-6 (Version None)
Quarter: 2011Q1

REPORT INFORMATION
  Report Type: 
  Country: None (occurrence: None)
  Receive Date: 20110321
  Receipt Date: 20110315
  Transmission Date: 20110831
  Serious: Yes (Life-Threatening, Other)
  Sender: FDA-Public Use
  Company Number: PHHY2011FR21813

PATIENT
  Sex: Male

DRUGS (6)
  1. LAMISIL [Suspect]
     Indication: FUNGAL INFECTION
     Dosage: 1 DF, QD
     Route: 048
     Dates: start: 20100603, end: 20100715
  2. ART 50 [Concomitant]
     Dosage: 1 DF, QD
  3. ZYLORIC [Suspect]
     Indication: ARTHROPATHY
     Dosage: 1 DF, QD
     Route: 048
     Dates: end: 20100715
  4. ZANIDIP [Concomitant]
     Indication: HYPERTENSION
     Dosage: 1 DF, QD
  5. DECAPEPTYL [Concomitant]
     Indication: NEOPLASM PROSTATE
     Dosage: UNK
     Dates: start: 20090101
  6. BICALUTAMIDE [Concomitant]
     Indication: NEOPLASM PROSTATE
     Dosage: 1 DF, QD
     Route: 048
     Dates: start: 20090101

REACTIONS (4)
  - LYMPHOCYTIC INFILTRATION [None]
  - AGRANULOCYTOSIS [None]
  - LYMPHOMA [None]
  - NEUTROPHIL COUNT DECREASED [None]
